FAERS Safety Report 23784801 (Version 1)
Quarter: 2024Q2

REPORT INFORMATION
  Report Type: Spontaneous
  Country: US (occurrence: US)
  Receive Date: 20240425
  Receipt Date: 20240425
  Transmission Date: 20240716
  Serious: No
  Sender: FDA-Public Use
  Company Number: US-SA-SAC20240418001137

PATIENT
  Sex: Female
  Weight: 83 kg

DRUGS (13)
  1. DUPIXENT [Suspect]
     Active Substance: DUPILUMAB
     Indication: Dermatitis atopic
     Dosage: 300MG , QOW
     Route: 058
  2. VITAMIN D3 [Concomitant]
     Active Substance: CHOLECALCIFEROL
  3. IRON [Concomitant]
     Active Substance: IRON
     Dosage: 325(65) MG
  4. HYDROCHLOROTHIAZIDE\TELMISARTAN [Concomitant]
     Active Substance: HYDROCHLOROTHIAZIDE\TELMISARTAN
  5. ETODOLAC [Concomitant]
     Active Substance: ETODOLAC
  6. FAMOTIDINE [Concomitant]
     Active Substance: FAMOTIDINE
  7. ALENDRONATE SODIUM [Concomitant]
     Active Substance: ALENDRONATE SODIUM
  8. AMOXICILLIN [Concomitant]
     Active Substance: AMOXICILLIN
  9. LOPERAMIDE [Concomitant]
     Active Substance: LOPERAMIDE
  10. PRISTIQ EXTENDED-RELEASE [Concomitant]
     Active Substance: DESVENLAFAXINE SUCCINATE
     Dosage: 100 MG TAB ER 24H
  11. SEROQUEL [Concomitant]
     Active Substance: QUETIAPINE FUMARATE
  12. CLONAZEPAM [Concomitant]
     Active Substance: CLONAZEPAM
  13. SEROQUEL [Concomitant]
     Active Substance: QUETIAPINE FUMARATE

REACTIONS (5)
  - Skin infection [Unknown]
  - Rash pruritic [Unknown]
  - Product dose omission issue [Unknown]
  - Therapeutic response decreased [Unknown]
  - Device defective [Unknown]
